FAERS Safety Report 20471175 (Version 2)
Quarter: 2022Q1

REPORT INFORMATION
  Report Type: Spontaneous
  Country: US (occurrence: US)
  Receive Date: 20220214
  Receipt Date: 20220217
  Transmission Date: 20220423
  Serious: Yes (Other)
  Sender: FDA-Public Use
  Company Number: US-TEVA-2022-US-2001566

PATIENT
  Age: 85 Year
  Sex: Male

DRUGS (6)
  1. BUDESONIDE [Suspect]
     Active Substance: BUDESONIDE
     Dosage: 0.25 MG/2 ML
     Route: 065
     Dates: start: 202201
  2. ALBUTEROL SULFATE [Interacting]
     Active Substance: ALBUTEROL SULFATE
     Dosage: 90 MCG/DOSE
     Route: 065
     Dates: start: 202112
  3. QVAR REDIHALER [Interacting]
     Active Substance: BECLOMETHASONE DIPROPIONATE
     Route: 065
  4. QVAR REDIHALER [Interacting]
     Active Substance: BECLOMETHASONE DIPROPIONATE
  5. QVAR REDIHALER [Interacting]
     Active Substance: BECLOMETHASONE DIPROPIONATE
  6. ALBUTEROL [Suspect]
     Active Substance: ALBUTEROL
     Dosage: ALBUTEROL HFA INHALER
     Route: 065

REACTIONS (6)
  - Pulmonary congestion [Unknown]
  - Product preparation error [Unknown]
  - Product prescribing error [Unknown]
  - Asthma [Not Recovered/Not Resolved]
  - Drug ineffective [Unknown]
  - Respiration abnormal [Unknown]

NARRATIVE: CASE EVENT DATE: 20211201
